FAERS Safety Report 6210748-4 (Version None)
Quarter: 2009Q2

REPORT INFORMATION
  Report Type: 
  Country: None (occurrence: None)
  Receive Date: 20090528
  Receipt Date: 20090528
  Transmission Date: 20091009
  Serious: Yes (Hospitalization)
  Sender: FDA-Public Use
  Company Number: None

PATIENT
  Sex: Male
  Weight: 65.9 kg

DRUGS (2)
  1. EPTIFIBATIDE [Suspect]
     Indication: PERCUTANEOUS CORONARY INTERVENTION
     Dosage: IV
     Route: 042
     Dates: start: 20090103, end: 20090104
  2. HEPARIN [Suspect]
     Dosage: IV
     Route: 042

REACTIONS (1)
  - PLATELET FACTOR 4 DECREASED [None]
